FAERS Safety Report 17889945 (Version 2)
Quarter: 2020Q2

REPORT INFORMATION
  Report Type: Spontaneous
  Country: SA (occurrence: SA)
  Receive Date: 20200612
  Receipt Date: 20200626
  Transmission Date: 20200714
  Serious: Yes (Death)
  Sender: FDA-Public Use
  Company Number: SA-BIOGEN-2020BI00884593

PATIENT
  Age: 2 Year
  Sex: Female

DRUGS (5)
  1. SPINRAZA [Suspect]
     Active Substance: NUSINERSEN
     Dosage: ON DAY 15, LOADING DOSE
     Route: 037
  2. SPINRAZA [Suspect]
     Active Substance: NUSINERSEN
     Dosage: ON DAY 29, LOADING DOSE
     Route: 037
  3. SPINRAZA [Suspect]
     Active Substance: NUSINERSEN
     Indication: SPINAL MUSCULAR ATROPHY
     Dosage: ON DAY 1, LOADING DOSE
     Route: 037
     Dates: start: 20200130
  4. SPINRAZA [Suspect]
     Active Substance: NUSINERSEN
     Dosage: ON DAY 69, LOADING DOSE
     Route: 037
  5. SPINRAZA [Suspect]
     Active Substance: NUSINERSEN
     Dosage: MAINTENANCE DOSE
     Route: 037

REACTIONS (1)
  - Death [Fatal]

NARRATIVE: CASE EVENT DATE: 20200604
